FAERS Safety Report 6972529-3 (Version None)
Quarter: 2010Q3

REPORT INFORMATION
  Report Type: 
  Country: None (occurrence: None)
  Receive Date: 20100824
  Receipt Date: 20100428
  Transmission Date: 20110219
  Serious: No
  Sender: FDA-Public Use
  Company Number: 307956

PATIENT
  Sex: Female

DRUGS (5)
  1. VICTOZA [Suspect]
     Indication: TYPE 2 DIABETES MELLITUS
     Dosage: SUBCUTANEOUS
     Route: 058
  2. VYTORIN [Concomitant]
  3. PROPRANOLOL [Concomitant]
  4. JANUMET [Concomitant]
  5. DIOVAN HCT [Concomitant]

REACTIONS (1)
  - OEDEMA [None]
